FAERS Safety Report 4432562-2 (Version None)
Quarter: 2004Q3

REPORT INFORMATION
  Report Type: 
  Country: None (occurrence: None)
  Receive Date: 20040820
  Receipt Date: 20040810
  Transmission Date: 20050211
  Serious: Yes (Disabling, Other)
  Sender: FDA-Public Use
  Company Number: 2004037133

PATIENT
  Age: 33 Year
  Sex: Male
  Weight: 63.5036 kg

DRUGS (10)
  1. NEURONTIN [Suspect]
     Indication: HERPES ZOSTER
     Dosage: 3200 MG (1600 MG, 2 IN 1 D), ORAL
     Route: 048
     Dates: start: 20020101, end: 20040701
  2. NEURONTIN [Suspect]
     Indication: NEUROPATHY
     Dosage: 3200 MG (1600 MG, 2 IN 1 D), ORAL
     Route: 048
     Dates: start: 20020101, end: 20040701
  3. ABACAVIR SULFATE (ABACAVIR SULFATE) [Concomitant]
  4. ATAZANAVIR SULFATE (ATAZANAVIR SULFATE) [Concomitant]
  5. STAVUDINE (STAVUDINE) [Concomitant]
  6. RITONAVIR (RITONAVIR) [Concomitant]
  7. DESLORATADINE (DESLORATADINE) [Concomitant]
  8. TRIAMCINOLONE ACETONIDE [Concomitant]
  9. ACYCLOVIR [Concomitant]
  10. MULTIVITAMINS (ASCORBIC ACID, ERGOCALCIFEROL, FOLIC ACID, NICOTINAMIDE [Concomitant]

REACTIONS (4)
  - AMNESIA [None]
  - DRUG EFFECT DECREASED [None]
  - INTENTIONAL OVERDOSE [None]
  - IRRITABLE BOWEL SYNDROME [None]
